FAERS Safety Report 7387648-X (Version None)
Quarter: 2011Q1

REPORT INFORMATION
  Report Type: 
  Country: None (occurrence: None)
  Receive Date: 20110331
  Receipt Date: 20110329
  Transmission Date: 20110831
  Serious: Yes (Other)
  Sender: FDA-Public Use
  Company Number: US-PFIZER INC-US-WYE-H17623110

PATIENT
  Sex: Female

DRUGS (8)
  1. ZOLOFT [Interacting]
     Indication: ANXIETY
     Dosage: 25 MG, 1X/DAY
     Route: 048
     Dates: start: 20100701
  2. KAPIDEX [Concomitant]
     Dosage: UNK
  3. ZOLOFT [Interacting]
     Indication: DEPRESSION
  4. RAPAMUNE [Interacting]
     Indication: IMMUNOSUPPRESSANT DRUG THERAPY
     Dosage: UNK
     Dates: start: 20100701
  5. DEXILANT [Concomitant]
     Indication: GASTRIC DISORDER
     Dosage: UNK
  6. AMBIEN [Concomitant]
     Dosage: UNK
  7. LOTREL [Suspect]
     Indication: HYPERTENSION
     Dosage: INCREASED TWICE IN 2010 DUE TO INCREASING BLOOD PRESSURE
  8. CELLCEPT [Interacting]
     Indication: IMMUNOSUPPRESSANT DRUG THERAPY
     Dosage: UNK
     Route: 065
     Dates: start: 20100701

REACTIONS (5)
  - DRUG INTERACTION [None]
  - BLOOD PRESSURE INCREASED [None]
  - CONDITION AGGRAVATED [None]
  - SOMNOLENCE [None]
  - FATIGUE [None]
